FAERS Safety Report 12797435 (Version 1)
Quarter: 2016Q3

REPORT INFORMATION
  Report Type: Spontaneous
  Country: US (occurrence: US)
  Receive Date: 20160930
  Receipt Date: 20160930
  Transmission Date: 20161109
  Serious: Yes (Other)
  Sender: FDA-Public Use
  Company Number: PHHY2016US131430

PATIENT
  Age: 60 Year
  Sex: Male

DRUGS (3)
  1. METOPROLOL. [Suspect]
     Active Substance: METOPROLOL
     Indication: SYSTOLIC ANTERIOR MOTION OF MITRAL VALVE
     Dosage: 50 MG, UNK
     Route: 065
  2. METOPROLOL. [Suspect]
     Active Substance: METOPROLOL
     Dosage: 100 MG, UNK
     Route: 065
  3. DISOPYRAMIDE [Suspect]
     Active Substance: DISOPYRAMIDE
     Indication: SYSTOLIC ANTERIOR MOTION OF MITRAL VALVE
     Dosage: 300 TO 750 MG IN DIVIDED DOSES 2-3 TIMES A DAY
     Route: 048

REACTIONS (2)
  - Product use issue [Unknown]
  - Systolic anterior motion of mitral valve [Recovering/Resolving]
